FAERS Safety Report 9123570 (Version 2)
Quarter: 2013Q1

REPORT INFORMATION
  Report Type: Spontaneous
  Country: IN (occurrence: IN)
  Receive Date: 20130115
  Receipt Date: 20130325
  Transmission Date: 20140127
  Serious: Yes (Other)
  Sender: FDA-Public Use
  Company Number: IN-ABBOTT-13P-078-1036129-00

PATIENT
  Sex: Male

DRUGS (8)
  1. VALPROATE SODIUM [Suspect]
     Indication: BIPOLAR I DISORDER
     Route: 065
  2. PHENYTOIN [Suspect]
     Indication: BIPOLAR I DISORDER
     Route: 065
  3. LITHIUM [Suspect]
     Indication: BIPOLAR I DISORDER
     Route: 065
  4. CARBAMAZEPINE [Suspect]
     Indication: BIPOLAR I DISORDER
  5. OLANZAPINE [Suspect]
     Indication: BIPOLAR I DISORDER
     Route: 065
  6. LEVETIRACETAM [Suspect]
     Indication: BIPOLAR I DISORDER
  7. TOPIRAMATE [Suspect]
     Indication: BIPOLAR I DISORDER
     Route: 065
  8. LAMOTRIGINE [Suspect]
     Indication: BIPOLAR I DISORDER
     Route: 065

REACTIONS (6)
  - Stevens-Johnson syndrome [Unknown]
  - Tremor [Unknown]
  - Weight increased [Unknown]
  - Hypertension [Unknown]
  - Rash [Unknown]
  - Off label use [Unknown]
